FAERS Safety Report 4983184-6 (Version None)
Quarter: 2006Q2

REPORT INFORMATION
  Report Type: 
  Country: None (occurrence: None)
  Receive Date: 20060426
  Receipt Date: 20060424
  Transmission Date: 20061013
  Serious: Yes (Other)
  Sender: FDA-Public Use
  Company Number: CA-GLAXOSMITHKLINE-A0603109A

PATIENT
  Age: 6 Year
  Sex: Male

DRUGS (4)
  1. FLOVENT [Suspect]
     Indication: DRUG USE FOR UNKNOWN INDICATION
     Dosage: 2PUFF TWICE PER DAY
     Route: 055
  2. VENTOLIN [Suspect]
     Indication: DRUG USE FOR UNKNOWN INDICATION
     Dosage: 2PUFF AS REQUIRED
     Route: 055
  3. VENTOLIN [Concomitant]
     Route: 055
  4. FLOVENT [Concomitant]
     Route: 055

REACTIONS (6)
  - ASTHMA [None]
  - CONDITION AGGRAVATED [None]
  - HYPERSENSITIVITY [None]
  - LISTLESS [None]
  - PYREXIA [None]
  - RESPIRATORY TRACT CONGESTION [None]
